FAERS Safety Report 5777252-9 (Version None)
Quarter: 2008Q2

REPORT INFORMATION
  Report Type: 
  Country: None (occurrence: None)
  Receive Date: 20080618
  Receipt Date: 20080609
  Transmission Date: 20081010
  Serious: Yes (Other)
  Sender: FDA-Public Use
  Company Number: US-ELI_LILLY_AND_COMPANY-US200806001777

PATIENT
  Age: 81 Year
  Sex: Female

DRUGS (2)
  1. HUMULIN N [Suspect]
  2. HUMULIN N [Suspect]
     Dosage: UNK, UNK
     Dates: start: 20080606

REACTIONS (2)
  - BREAST CANCER [None]
  - GAIT DISTURBANCE [None]
